FAERS Safety Report 5476334-9 (Version None)
Quarter: 2007Q3

REPORT INFORMATION
  Report Type: 
  Country: None (occurrence: None)
  Receive Date: 20070914
  Receipt Date: 20070806
  Transmission Date: 20080115
  Serious: Yes (Other)
  Sender: FDA-Public Use
  Company Number: 07-247

PATIENT
  Age: 58 Year
  Sex: Female
  Weight: 68.0396 kg

DRUGS (2)
  1. ALEVE [Suspect]
     Indication: ARTHRALGIA
     Dosage: 220 MG, DAILY, ORAL
     Route: 048
     Dates: start: 20070725, end: 20070727
  2. FOSAMAX [Concomitant]

REACTIONS (4)
  - ANAL DISCOMFORT [None]
  - FLATULENCE [None]
  - HAEMATOCHEZIA [None]
  - RECTAL HAEMORRHAGE [None]
